FAERS Safety Report 10158503 (Version 1)
Quarter: 2014Q2

REPORT INFORMATION
  Report Type: Spontaneous
  Country: CZ (occurrence: CZ)
  Receive Date: 20140507
  Receipt Date: 20140507
  Transmission Date: 20141212
  Serious: Yes (Hospitalization)
  Sender: FDA-Public Use
  Company Number: CZ-ABBVIE-14P-217-1235171-00

PATIENT
  Sex: Male

DRUGS (6)
  1. VALPROIC ACID [Suspect]
     Indication: MATERNAL EXPOSURE TIMING UNSPECIFIED
     Route: 064
  2. HYDROXYCHLOROQUINE [Suspect]
     Indication: MATERNAL EXPOSURE TIMING UNSPECIFIED
     Route: 064
  3. ACETYLSALICYLIC ACID [Suspect]
     Indication: MATERNAL EXPOSURE TIMING UNSPECIFIED
     Route: 064
  4. AZATHIOPRINE [Suspect]
     Indication: MATERNAL EXPOSURE TIMING UNSPECIFIED
     Route: 064
  5. CORTICOSTEROIDS [Suspect]
     Indication: MATERNAL EXPOSURE TIMING UNSPECIFIED
     Route: 064
  6. BETAMETHASONE [Suspect]
     Indication: MATERNAL EXPOSURE TIMING UNSPECIFIED
     Route: 064

REACTIONS (14)
  - Leukopenia [Recovered/Resolved]
  - Thrombocytopenia [Recovered/Resolved]
  - Premature baby [Unknown]
  - Foetal distress syndrome [Recovered/Resolved]
  - Acute respiratory distress syndrome [Unknown]
  - Bronchopulmonary dysplasia [Unknown]
  - Necrotising colitis [Unknown]
  - Bone disorder [Unknown]
  - Hypothyroidism [Unknown]
  - Blood cortisol decreased [Unknown]
  - Vesicoureteric reflux [Unknown]
  - Hypertonia [Unknown]
  - Agitation [Unknown]
  - Foetal exposure during pregnancy [Recovered/Resolved]
